FAERS Safety Report 5752453-4 (Version None)
Quarter: 2008Q2

REPORT INFORMATION
  Report Type: 
  Country: None (occurrence: None)
  Receive Date: 20080529
  Receipt Date: 20080516
  Transmission Date: 20081010
  Serious: Yes (Other)
  Sender: FDA-Public Use
  Company Number: GB-BAUSCH-2008BL002295

PATIENT
  Age: 89 Year
  Sex: Male

DRUGS (4)
  1. PREDNISOLONE SODIUM PHOSPHATE [Suspect]
     Indication: UVEITIS
     Route: 047
     Dates: start: 20030601
  2. PREDNISOLONE SODIUM PHOSPHATE [Suspect]
     Indication: KERATITIS
     Route: 047
     Dates: start: 20030601
  3. TIMOLOL MALEATE [Suspect]
     Indication: UVEITIS
     Route: 047
     Dates: start: 20030601
  4. TIMOLOL MALEATE [Suspect]
     Indication: KERATITIS
     Route: 047
     Dates: start: 20030601

REACTIONS (1)
  - CORNEAL DEPOSITS [None]
